FAERS Safety Report 6429187-6 (Version None)
Quarter: 2009Q4

REPORT INFORMATION
  Report Type: 
  Country: None (occurrence: None)
  Receive Date: 20091105
  Receipt Date: 20091027
  Transmission Date: 20100525
  Serious: Yes (Other)
  Sender: FDA-Public Use
  Company Number: US-GENENTECH-292476

PATIENT
  Sex: Female

DRUGS (2)
  1. BEVACIZUMAB [Suspect]
     Indication: COLON CANCER
     Route: 042
  2. CAPECITABINE [Suspect]
     Indication: COLON CANCER
     Dosage: 1500 MG, UNK
     Route: 048
     Dates: start: 20080610

REACTIONS (1)
  - MALIGNANT NEOPLASM PROGRESSION [None]
